FAERS Safety Report 5890201-8 (Version None)
Quarter: 2008Q3

REPORT INFORMATION
  Report Type: 
  Country: None (occurrence: None)
  Receive Date: 20080919
  Receipt Date: 20080909
  Transmission Date: 20090109
  Serious: Yes (Hospitalization, Other)
  Sender: FDA-Public Use
  Company Number: AU-PFIZER INC-2008076143

PATIENT
  Sex: Female

DRUGS (6)
  1. ZOLOFT [Suspect]
     Indication: ANXIETY
     Dates: start: 20080826
  2. ZOLOFT [Suspect]
     Indication: NERVOUSNESS
  3. OMEPRAZOLE [Concomitant]
  4. ALL OTHER THERAPEUTIC PRODUCTS [Concomitant]
  5. FISH OIL [Concomitant]
  6. ETIDRONATE DISODIUM [Concomitant]

REACTIONS (12)
  - ANOREXIA [None]
  - ANXIETY [None]
  - DRY MOUTH [None]
  - DYSPEPSIA [None]
  - FATIGUE [None]
  - HEADACHE [None]
  - HYPERHIDROSIS [None]
  - NAUSEA [None]
  - PANIC REACTION [None]
  - PRESYNCOPE [None]
  - SYNCOPE [None]
  - TREMOR [None]
